FAERS Safety Report 23717731 (Version 1)
Quarter: 2024Q2

REPORT INFORMATION
  Report Type: Report from Study
  Country: US (occurrence: US)
  Receive Date: 20240408
  Receipt Date: 20240408
  Transmission Date: 20240715
  Serious: Yes (Other)
  Sender: FDA-Public Use
  Company Number: US-BAUSCH-BL-2024-004855

PATIENT
  Age: 64 Year
  Sex: Male

DRUGS (1)
  1. XIFAXAN [Suspect]
     Active Substance: RIFAXIMIN
     Indication: Product used for unknown indication
     Route: 065
     Dates: end: 2024

REACTIONS (5)
  - Hallucination [Unknown]
  - Malaise [Unknown]
  - Therapy interrupted [Unknown]
  - Inability to afford medication [Unknown]
  - Insurance issue [Unknown]

NARRATIVE: CASE EVENT DATE: 20240101
